FAERS Safety Report 13184629 (Version 3)
Quarter: 2017Q2

REPORT INFORMATION
  Report Type: Spontaneous
  Country: US (occurrence: US)
  Receive Date: 20170203
  Receipt Date: 20170502
  Transmission Date: 20170830
  Serious: Yes (Hospitalization, Other)
  Sender: FDA-Public Use
  Company Number: US-ASTELLAS-2017US004037

PATIENT
  Age: 3 Year
  Sex: Male

DRUGS (11)
  1. PROGRAF [Suspect]
     Active Substance: TACROLIMUS\TACROLIMUS ANHYDROUS
     Dosage: 0.5 MG, EVERY 12 HOURS
     Route: 048
     Dates: start: 20150321
  2. PROGRAF [Suspect]
     Active Substance: TACROLIMUS\TACROLIMUS ANHYDROUS
     Route: 048
     Dates: start: 20140917
  3. PROGRAF [Suspect]
     Active Substance: TACROLIMUS\TACROLIMUS ANHYDROUS
     Route: 048
     Dates: start: 20141205
  4. PROGRAF [Suspect]
     Active Substance: TACROLIMUS\TACROLIMUS ANHYDROUS
     Dosage: 0.4 MG, EVERY 12 HOURS
     Route: 048
     Dates: start: 20150424
  5. PROGRAF [Suspect]
     Active Substance: TACROLIMUS\TACROLIMUS ANHYDROUS
     Route: 048
     Dates: start: 20150727
  6. PROGRAF [Suspect]
     Active Substance: TACROLIMUS\TACROLIMUS ANHYDROUS
     Route: 048
     Dates: start: 20150204
  7. PROGRAF [Suspect]
     Active Substance: TACROLIMUS\TACROLIMUS ANHYDROUS
     Dosage: 0.6 MG, EVERY 12 HOURS
     Route: 048
     Dates: start: 20150430
  8. PROGRAF [Suspect]
     Active Substance: TACROLIMUS\TACROLIMUS ANHYDROUS
     Indication: LIVER TRANSPLANT
     Dosage: UNK UNK, UNKNOWN FREQ.
     Route: 065
  9. PROGRAF [Suspect]
     Active Substance: TACROLIMUS\TACROLIMUS ANHYDROUS
     Dosage: 0.8 MG, EVERY 12 HOURS
     Route: 048
     Dates: start: 20150406
  10. PROGRAF [Suspect]
     Active Substance: TACROLIMUS\TACROLIMUS ANHYDROUS
     Route: 048
     Dates: start: 20150728
  11. PROGRAF [Suspect]
     Active Substance: TACROLIMUS\TACROLIMUS ANHYDROUS
     Dosage: 1 MG, TWICE DAILY
     Route: 048
     Dates: start: 20150214

REACTIONS (33)
  - Anaemia of chronic disease [Recovering/Resolving]
  - Upper respiratory tract infection [Recovered/Resolved]
  - Haematochezia [Recovered/Resolved]
  - Oral herpes [Recovered/Resolved]
  - Skin candida [Recovered/Resolved]
  - Immunosuppressant drug level decreased [Unknown]
  - Epstein-Barr virus infection [Recovered/Resolved]
  - Osteomyelitis bacterial [Recovered/Resolved]
  - Neutropenia [Unknown]
  - Renal tubular necrosis [Recovering/Resolving]
  - Balanoposthitis [Recovered/Resolved]
  - Decubitus ulcer [Unknown]
  - Metabolic acidosis [Recovered/Resolved]
  - Renal injury [Unknown]
  - Septic shock [Recovered/Resolved]
  - Respiratory distress [Recovered/Resolved]
  - Rhinovirus infection [Recovering/Resolving]
  - Clostridium difficile colitis [Recovering/Resolving]
  - Ventricular extrasystoles [Recovered/Resolved]
  - Acute kidney injury [Recovered/Resolved]
  - Pericardial effusion [Unknown]
  - Abscess [Unknown]
  - Coagulopathy [Recovered/Resolved]
  - Shock [Unknown]
  - Respiratory failure [Recovered/Resolved]
  - Multiple organ dysfunction syndrome [Recovered/Resolved]
  - Clostridium difficile colitis [Recovered/Resolved]
  - Pancytopenia [Unknown]
  - Urinary tract infection [Recovered/Resolved]
  - Fluid overload [Unknown]
  - Leukopenia [Unknown]
  - Transaminases increased [Unknown]
  - Neuralgia [Recovered/Resolved]
